FAERS Safety Report 7533651-6 (Version None)
Quarter: 2011Q2

REPORT INFORMATION
  Report Type: 
  Country: None (occurrence: None)
  Receive Date: 20110608
  Receipt Date: 20060403
  Transmission Date: 20111010
  Serious: Yes (Death, Hospitalization)
  Sender: FDA-Public Use
  Company Number: PHHO2005CA13428

PATIENT
  Sex: Male

DRUGS (1)
  1. CLOZARIL [Suspect]
     Indication: PSYCHOTIC DISORDER
     Dosage: 25 MG, BID
     Route: 048
     Dates: start: 20040923

REACTIONS (6)
  - SOMNOLENCE [None]
  - DEATH [None]
  - ATRIAL FIBRILLATION [None]
  - DYSPHAGIA [None]
  - RESTLESSNESS [None]
  - URINARY TRACT INFECTION [None]
